FAERS Safety Report 11195876 (Version 1)
Quarter: 2015Q2

REPORT INFORMATION
  Report Type: Spontaneous
  Country: US (occurrence: None)
  Receive Date: 20150615
  Receipt Date: 20150615
  Transmission Date: 20150821
  Serious: Yes (Disabling)
  Sender: FDA-Public Use
  Company Number: None

PATIENT
  Age: 34 Year
  Sex: Male
  Weight: 81.65 kg

DRUGS (2)
  1. LEVOFLOXACIN. [Suspect]
     Active Substance: LEVOFLOXACIN
     Indication: URINARY TRACT INFECTION
     Dosage: 1 PILL ONCE DAILY TAKEN BY MOUTH
     Route: 048
     Dates: start: 20150609, end: 20150614
  2. COLLAGEN SUPPLEMENT [Concomitant]

REACTIONS (7)
  - Tendon pain [None]
  - Loss of libido [None]
  - Tendonitis [None]
  - Orthosis user [None]
  - Pain [None]
  - Libido disorder [None]
  - Myalgia [None]

NARRATIVE: CASE EVENT DATE: 20150609
